FAERS Safety Report 4663208-6 (Version None)
Quarter: 2005Q2

REPORT INFORMATION
  Report Type: 
  Country: None (occurrence: None)
  Receive Date: 20050516
  Receipt Date: 20050503
  Transmission Date: 20051028
  Serious: Yes (Hospitalization)
  Sender: FDA-Public Use
  Company Number: GXKR2005BR01019

PATIENT
  Age: 2 Year
  Sex: Male
  Weight: 13.9 kg

DRUGS (5)
  1. AMOXICILLIN + CLAVULANATE POTASSIUM (NGX) (AMOXICILLIN, CLAVULANATE) S [Suspect]
     Indication: PNEUMONIA
     Dosage: 5 ML, Q8H, ORAL
     Route: 048
     Dates: start: 20050415, end: 20050425
  2. SALINE (SODIUM CHLORIDE) SOLUTION [Concomitant]
  3. NOVALGINA (METAMIZOLE SODIUM) [Concomitant]
  4. BEROTEC (FENOTEROL HYDROBROMIDE) [Concomitant]
  5. ATROVENT [Concomitant]

REACTIONS (7)
  - BACTERIAL INFECTION [None]
  - DRUG INEFFECTIVE [None]
  - MOUTH PLAQUE [None]
  - PHARMACEUTICAL PRODUCT COMPLAINT [None]
  - PHARYNGITIS [None]
  - PYREXIA [None]
  - TONSILLITIS [None]
